FAERS Safety Report 10715721 (Version 1)
Quarter: 2015Q1

REPORT INFORMATION
  Report Type: Spontaneous
  Country: US (occurrence: None)
  Receive Date: 20150107
  Receipt Date: 20150107
  Transmission Date: 20150721
  Serious: Yes (Other)
  Sender: FDA-Public Use
  Company Number: FK201400530

PATIENT
  Age: 64 Year
  Sex: Male

DRUGS (1)
  1. DIPRIVAN [Suspect]
     Active Substance: PROPOFOL
     Indication: SEDATIVE THERAPY
     Route: 040
     Dates: start: 20140206

REACTIONS (2)
  - Cough [None]
  - Retching [None]

NARRATIVE: CASE EVENT DATE: 20140206
